FAERS Safety Report 9862634 (Version 2)
Quarter: 2014Q1

REPORT INFORMATION
  Report Type: Spontaneous
  Country: US (occurrence: US)
  Receive Date: 20140203
  Receipt Date: 20140221
  Transmission Date: 20141002
  Serious: Yes (Hospitalization, Other)
  Sender: FDA-Public Use
  Company Number: US-009507513-1401USA014628

PATIENT
  Age: 60 Year
  Sex: Male

DRUGS (15)
  1. JANUVIA [Suspect]
     Indication: DIABETES MELLITUS
     Dosage: 50 MG, ONCE DAILY
     Route: 048
  2. LEXAPRO [Concomitant]
  3. LASIX (FUROSEMIDE) [Concomitant]
  4. GLIPIZIDE [Concomitant]
  5. LANTUS [Concomitant]
  6. LACTULOSE [Concomitant]
  7. ATIVAN [Concomitant]
  8. OXYCONTIN [Concomitant]
  9. ROXICODONE [Concomitant]
  10. PROTONIX [Concomitant]
  11. XIFAXAN [Concomitant]
  12. ALDACTONE TABLETS [Concomitant]
  13. FLOMAX (MORNIFLUMATE) [Concomitant]
  14. RESTORIL (CHLORMEZANONE) [Concomitant]
  15. DILATIN [Concomitant]

REACTIONS (1)
  - Hepatic cancer [Not Recovered/Not Resolved]
